FAERS Safety Report 17500466 (Version 2)
Quarter: 2020Q1

REPORT INFORMATION
  Report Type: Report from Study
  Country: MX (occurrence: MX)
  Receive Date: 20200305
  Receipt Date: 20200311
  Transmission Date: 20200409
  Serious: Yes (Other)
  Sender: FDA-Public Use
  Company Number: NVSC2020MX061854

PATIENT
  Sex: Male
  Weight: 89 kg

DRUGS (2)
  1. DIOVAN [Suspect]
     Active Substance: VALSARTAN
     Dosage: 2 OR 3 (80 MG), QD
     Route: 048
     Dates: start: 2019, end: 202001
  2. DIOVAN [Suspect]
     Active Substance: VALSARTAN
     Indication: BLOOD PRESSURE INCREASED
     Dosage: 1 DF, QD
     Route: 048

REACTIONS (2)
  - Off label use [Unknown]
  - Diabetes mellitus [Not Recovered/Not Resolved]
